FAERS Safety Report 10275796 (Version 2)
Quarter: 2014Q3

REPORT INFORMATION
  Report Type: Spontaneous
  Country: IT (occurrence: IT)
  Receive Date: 20140703
  Receipt Date: 20140721
  Transmission Date: 20150326
  Serious: Yes (Death, Hospitalization)
  Sender: FDA-Public Use
  Company Number: IT-CELGENEUS-083-50794-14063966

PATIENT
  Age: 75 Year
  Sex: Female

DRUGS (1)
  1. VIDAZA [Suspect]
     Active Substance: AZACITIDINE
     Indication: CHRONIC MYELOMONOCYTIC LEUKAEMIA
     Dosage: 75 MILLIGRAM/SQ. METER
     Route: 065
     Dates: start: 201111

REACTIONS (2)
  - Acute myeloid leukaemia [Fatal]
  - Pneumonia [Unknown]

NARRATIVE: CASE EVENT DATE: 201210
